FAERS Safety Report 6965453-3 (Version None)
Quarter: 2010Q3

REPORT INFORMATION
  Report Type: 
  Country: None (occurrence: None)
  Receive Date: 20100903
  Receipt Date: 20100825
  Transmission Date: 20110219
  Serious: Yes (Hospitalization, Disabling)
  Sender: FDA-Public Use
  Company Number: A0879313A

PATIENT
  Age: 64 Year
  Sex: Male

DRUGS (2)
  1. AVANDIA [Suspect]
     Dosage: 10MG PER DAY
     Route: 065
     Dates: start: 20000101, end: 20080101
  2. METFORMIN [Suspect]
     Dosage: 500MG TWICE PER DAY
     Route: 065
     Dates: start: 20000101, end: 20081201

REACTIONS (1)
  - CARDIAC FAILURE CONGESTIVE [None]
